FAERS Safety Report 4764856-5 (Version None)
Quarter: 2005Q3

REPORT INFORMATION
  Report Type: 
  Country: None (occurrence: None)
  Receive Date: 20050906
  Receipt Date: 20050824
  Transmission Date: 20060218
  Serious: Yes (Other)
  Sender: FDA-Public Use
  Company Number: 2005120887

PATIENT
  Age: 53 Year
  Sex: Male
  Weight: 77.1115 kg

DRUGS (4)
  1. PROCARDIA XL [Suspect]
     Indication: HYPERTENSION
     Dosage: 60 MG (60 MG, QD), ORAL
     Route: 048
     Dates: start: 20030101
  2. ATENOLOL [Concomitant]
  3. NEXIUM [Concomitant]
  4. ALLEGRA [Concomitant]

REACTIONS (2)
  - CARCINOID TUMOUR OF THE SMALL BOWEL [None]
  - GASTROINTESTINAL NEOPLASM [None]
